FAERS Safety Report 9543407 (Version 3)
Quarter: 2014Q1

REPORT INFORMATION
  Report Type: Spontaneous
  Country: IT (occurrence: IT)
  Receive Date: 20130923
  Receipt Date: 20140210
  Transmission Date: 20141002
  Serious: Yes (Hospitalization)
  Sender: FDA-Public Use
  Company Number: IT-TEVA-434042USA

PATIENT
  Age: 75 Year
  Sex: Male
  Weight: 66 kg

DRUGS (6)
  1. LEVACT [Suspect]
     Indication: MANTLE CELL LYMPHOMA
     Dosage: 2.5 MG/ML POWDER FOR CONCENTRATE
     Route: 042
     Dates: start: 20130722, end: 20130828
  2. MABTHERA [Suspect]
     Indication: MANTLE CELL LYMPHOMA
     Dosage: 500MG/50ML
     Route: 042
     Dates: start: 20130722, end: 20130826
  3. ARACTIN [Suspect]
     Indication: MANTLE CELL LYMPHOMA
     Route: 042
     Dates: start: 20130722, end: 20130829
  4. ALLOPURINOL [Concomitant]
     Indication: PROPHYLAXIS
     Dosage: 300 MILLIGRAM DAILY;
     Route: 048
     Dates: start: 20130722, end: 20130910
  5. BACTRIM [Concomitant]
     Dosage: 160/800 MG
     Route: 048
     Dates: start: 20130722, end: 20130823
  6. ACICLOVIR ALMUS [Concomitant]
     Indication: ANTIVIRAL PROPHYLAXIS
     Dosage: 400MG/5ML ORAL SUSPENSION
     Route: 048
     Dates: start: 20130722, end: 20130910

REACTIONS (2)
  - Pancytopenia [Recovered/Resolved]
  - Erythema [Recovered/Resolved]
